FAERS Safety Report 4940888-9 (Version None)
Quarter: 2006Q1

REPORT INFORMATION
  Report Type: 
  Country: None (occurrence: None)
  Receive Date: 20060313
  Receipt Date: 20060301
  Transmission Date: 20060701
  Serious: Yes (Hospitalization)
  Sender: FDA-Public Use
  Company Number: US-BRISTOL-MYERS SQUIBB COMPANY-13300595

PATIENT
  Sex: Female

DRUGS (2)
  1. ABILIFY [Suspect]
     Dosage: REDUCED TO ^POSSIBLY 15 MG DAILY^
     Route: 048
  2. LITHIUM [Concomitant]

REACTIONS (2)
  - CONFUSIONAL STATE [None]
  - MENTAL STATUS CHANGES [None]
